FAERS Safety Report 10073542 (Version 4)
Quarter: 2014Q2

REPORT INFORMATION
  Report Type: Report from Study
  Country: IE (occurrence: IE)
  Receive Date: 20140411
  Receipt Date: 20140614
  Transmission Date: 20141212
  Serious: Yes (Disabling, Other)
  Sender: FDA-Public Use
  Company Number: IE-ABBVIE-14P-229-1221574-00

PATIENT
  Age: 63 Year
  Sex: Male

DRUGS (4)
  1. HUMIRA [Suspect]
     Indication: COLITIS ULCERATIVE
     Route: 058
     Dates: start: 20140218, end: 20140318
  2. ASACOLON [Concomitant]
     Indication: COLITIS ULCERATIVE
     Route: 048
     Dates: start: 200409
  3. CIPRAMIL [Concomitant]
     Indication: ANXIETY
     Route: 048
     Dates: start: 20020219
  4. CARDICOR [Concomitant]
     Indication: HYPERTENSION
     Route: 048
     Dates: start: 20060225, end: 20140402

REACTIONS (32)
  - Pain [Recovering/Resolving]
  - Influenza like illness [Recovered/Resolved]
  - Dysuria [Recovered/Resolved]
  - Influenza like illness [Recovering/Resolving]
  - Dyspnoea [Recovering/Resolving]
  - Bradycardia [Unknown]
  - Chest discomfort [Recovering/Resolving]
  - Hypopnoea [Recovering/Resolving]
  - Drug intolerance [Recovering/Resolving]
  - Pain in extremity [Unknown]
  - Mobility decreased [Unknown]
  - Serum sickness [Recovering/Resolving]
  - Wheezing [Recovering/Resolving]
  - Pain [Recovering/Resolving]
  - Dyspnoea [Recovering/Resolving]
  - Fatigue [Recovering/Resolving]
  - Pain in extremity [Not Recovered/Not Resolved]
  - Bone pain [Not Recovered/Not Resolved]
  - Pain [Not Recovered/Not Resolved]
  - Pain in extremity [Not Recovered/Not Resolved]
  - Neck pain [Not Recovered/Not Resolved]
  - Pain [Not Recovered/Not Resolved]
  - Arthralgia [Not Recovered/Not Resolved]
  - Joint range of motion decreased [Not Recovered/Not Resolved]
  - Pain in extremity [Not Recovered/Not Resolved]
  - Arthralgia [Not Recovered/Not Resolved]
  - Arthralgia [Not Recovered/Not Resolved]
  - Post viral fatigue syndrome [Not Recovered/Not Resolved]
  - Arthralgia [Not Recovered/Not Resolved]
  - Arthralgia [Unknown]
  - Adverse drug reaction [Recovering/Resolving]
  - Middle insomnia [Not Recovered/Not Resolved]
